FAERS Safety Report 7592091-4 (Version None)
Quarter: 2011Q2

REPORT INFORMATION
  Report Type: 
  Country: None (occurrence: None)
  Receive Date: 20110628
  Receipt Date: 20110622
  Transmission Date: 20111010
  Serious: Yes (Death)
  Sender: FDA-Public Use
  Company Number: 2011SP029524

PATIENT
  Sex: Male

DRUGS (2)
  1. RIBAVIRIN [Suspect]
     Indication: HEPATITIS C
     Dates: start: 20020301, end: 20030207
  2. PEG-INTRON [Suspect]
     Indication: HEPATITIS C
     Dates: start: 20020301, end: 20030207

REACTIONS (5)
  - FEELING HOT [None]
  - HEPATIC FUNCTION ABNORMAL [None]
  - NASAL SEPTUM DEVIATION [None]
  - MOTOR DYSFUNCTION [None]
  - MEMORY IMPAIRMENT [None]
